FAERS Safety Report 6083359-1 (Version None)
Quarter: 2009Q1

REPORT INFORMATION
  Report Type: 
  Country: None (occurrence: None)
  Receive Date: 20090217
  Receipt Date: 20090206
  Transmission Date: 20090719
  Serious: Yes (Hospitalization)
  Sender: FDA-Public Use
  Company Number: CLOF-1000427

PATIENT
  Age: 73 Year
  Sex: Female

DRUGS (11)
  1. CLOLAR [Suspect]
     Indication: MYELODYSPLASTIC SYNDROME
     Dosage: 19 MG, QDX5; INTRAVENOUS
     Route: 042
     Dates: start: 20090126, end: 20090130
  2. ATENOLOL [Concomitant]
  3. CARISOPRODOL [Concomitant]
  4. DIOVAN [Concomitant]
  5. LEXAPRO [Concomitant]
  6. LORAZEPAM [Concomitant]
  7. NIFEDIPINE [Concomitant]
  8. PREMPRO [Concomitant]
  9. PRILOSEC [Concomitant]
  10. AUGMENTIN '125' [Concomitant]
  11. CIPRO [Concomitant]

REACTIONS (11)
  - DEHYDRATION [None]
  - FATIGUE [None]
  - HAEMATOCRIT DECREASED [None]
  - HAEMOGLOBIN DECREASED [None]
  - NAUSEA [None]
  - NEUTROPENIA [None]
  - NEUTROPENIC INFECTION [None]
  - RED BLOOD CELL COUNT DECREASED [None]
  - THROMBOCYTOPENIA [None]
  - VOMITING [None]
  - WHITE BLOOD CELL COUNT DECREASED [None]
